FAERS Safety Report 8350293-3 (Version None)
Quarter: 2012Q2

REPORT INFORMATION
  Report Type: 
  Country: None (occurrence: None)
  Receive Date: 20120510
  Receipt Date: 20120504
  Transmission Date: 20120825
  Serious: Yes (Other)
  Sender: FDA-Public Use
  Company Number: US-PFIZER INC-2012110311

PATIENT
  Sex: Female
  Weight: 118 kg

DRUGS (4)
  1. METFORMIN [Concomitant]
     Dosage: UNK
  2. LYRICA [Suspect]
     Indication: FIBROMYALGIA
     Dosage: 100 MG, 3X/DAY
     Route: 048
     Dates: start: 20120315, end: 20120315
  3. LYRICA [Suspect]
     Dosage: 100 MG, 1X/DAY
     Route: 048
     Dates: start: 20120316
  4. ZESTRIL [Concomitant]
     Indication: HYPERTENSION
     Dosage: UNK

REACTIONS (5)
  - GAIT DISTURBANCE [None]
  - SOMNOLENCE [None]
  - FEELING DRUNK [None]
  - IMPAIRED WORK ABILITY [None]
  - THERAPEUTIC RESPONSE UNEXPECTED [None]
